FAERS Safety Report 10867527 (Version 3)
Quarter: 2015Q2

REPORT INFORMATION
  Report Type: Spontaneous
  Country: IT (occurrence: IT)
  Receive Date: 20150225
  Receipt Date: 20150407
  Transmission Date: 20150821
  Serious: Yes (Hospitalization, Other)
  Sender: FDA-Public Use
  Company Number: IT-SA-2015SA019956

PATIENT
  Age: 67 Year
  Sex: Male

DRUGS (5)
  1. ROCEFIN [Concomitant]
     Active Substance: CEFTRIAXONE SODIUM
  2. MIRCERA [Concomitant]
     Active Substance: METHOXY POLYETHYLENE GLYCOL-EPOETIN BETA
  3. CLEXANE [Suspect]
     Active Substance: ENOXAPARIN SODIUM
     Indication: ATRIAL FIBRILLATION
     Dosage: DOSE: 4000 (UNITS NOT PROVIDED) BID
  4. CLEXANE [Suspect]
     Active Substance: ENOXAPARIN SODIUM
     Indication: ATRIAL FIBRILLATION
     Dosage: ROUTE IS GIVEN AS DIALYSIS
     Dates: start: 20150201, end: 20150208
  5. UNASYN [Concomitant]
     Active Substance: AMPICILLIN SODIUM\SULBACTAM SODIUM

REACTIONS (6)
  - Hypoperfusion [Unknown]
  - Brain hypoxia [Unknown]
  - Pain [Recovering/Resolving]
  - Haematoma [Recovering/Resolving]
  - Depressed level of consciousness [Unknown]
  - Hypotension [Recovering/Resolving]

NARRATIVE: CASE EVENT DATE: 201502
